FAERS Safety Report 4873257-0 (Version None)
Quarter: 2006Q1

REPORT INFORMATION
  Report Type: 
  Country: None (occurrence: None)
  Receive Date: 20060105
  Receipt Date: 20051028
  Transmission Date: 20060701
  Serious: Yes (Hospitalization)
  Sender: FDA-Public Use
  Company Number: PHBS2005JP16032

PATIENT
  Age: 72 Year
  Sex: Male
  Weight: 47 kg

DRUGS (14)
  1. NEORAL [Suspect]
     Indication: ERYTHRODERMIC PSORIASIS
     Dosage: 150 MG/EVERY OTHER DAY
     Route: 065
     Dates: end: 20051026
  2. NEORAL [Suspect]
     Dosage: 150 MG/D
     Route: 048
     Dates: start: 20051108, end: 20051112
  3. NEORAL [Suspect]
     Dosage: 100 MG/D
     Route: 048
     Dates: start: 20051113, end: 20051205
  4. NEORAL [Suspect]
     Dosage: 75 MG/D
     Route: 048
     Dates: start: 20051206
  5. ZYLORIC [Suspect]
     Dosage: 100 MG/D
     Route: 048
     Dates: start: 20050201, end: 20051027
  6. BASEN [Suspect]
     Dosage: 0.2 MG/D
     Route: 048
     Dates: start: 20050201, end: 20051027
  7. CELTECT [Concomitant]
     Dosage: 60 MG/D
     Route: 048
     Dates: end: 20051124
  8. GLYCYRON [Concomitant]
     Dosage: 4 DF/D
     Route: 048
     Dates: end: 20051124
  9. ATARAX [Concomitant]
     Dosage: 50 MG/D
     Route: 048
     Dates: end: 20051124
  10. GASTER [Concomitant]
     Dosage: 20 MG/D
     Route: 048
     Dates: end: 20051124
  11. INNOLET N [Concomitant]
     Dosage: 6 DF/D
     Route: 058
     Dates: start: 20050801, end: 20051124
  12. OXAROL [Concomitant]
     Route: 061
     Dates: end: 20051026
  13. AMARYL [Suspect]
     Dosage: 1 MG/D
  14. PREDONINE [Concomitant]
     Dosage: 5 MG/D
     Route: 048
     Dates: end: 20051122

REACTIONS (14)
  - BLOOD CREATININE INCREASED [None]
  - BLOOD UREA INCREASED [None]
  - C-REACTIVE PROTEIN INCREASED [None]
  - CONTUSION [None]
  - DEPRESSED LEVEL OF CONSCIOUSNESS [None]
  - DIABETIC COMPLICATION [None]
  - DISEASE PROGRESSION [None]
  - FALL [None]
  - HYPERCALCAEMIA [None]
  - HYPOGLYCAEMIA [None]
  - NEPHROGENIC ANAEMIA [None]
  - PSORIASIS [None]
  - RENAL FAILURE CHRONIC [None]
  - THROMBOCYTOPENIA [None]
